FAERS Safety Report 6582071-X (Version None)
Quarter: 2010Q1

REPORT INFORMATION
  Report Type: 
  Country: None (occurrence: None)
  Receive Date: 20100216
  Receipt Date: 20100113
  Transmission Date: 20100710
  Serious: Yes (Other)
  Sender: FDA-Public Use
  Company Number: US-RB-002563-10

PATIENT
  Age: 70 Year
  Sex: Male

DRUGS (1)
  1. MUCINEX [Suspect]
     Dosage: PATIENT WAS TAKING THE PRODUCT TWICE DAILY, ONE TABLET PER DOSE
     Route: 048

REACTIONS (2)
  - BLOOD PRESSURE INCREASED [None]
  - HEART RATE INCREASED [None]
